FAERS Safety Report 6814208-9 (Version None)
Quarter: 2010Q2

REPORT INFORMATION
  Report Type: 
  Country: None (occurrence: None)
  Receive Date: 20100629
  Receipt Date: 20100616
  Transmission Date: 20101027
  Serious: Yes (Hospitalization)
  Sender: FDA-Public Use
  Company Number: JPI-P-010984

PATIENT
  Age: 45 Year
  Sex: Female
  Weight: 58.0604 kg

DRUGS (4)
  1. XYREM [Suspect]
     Indication: NARCOLEPSY
     Dosage: 6 GM (3 GM, 2 IN 1 D), ORAL
     Route: 048
     Dates: start: 20071101, end: 20080101
  2. AMPHETAMINE SULFATE [Suspect]
     Indication: DRUG USE FOR UNKNOWN INDICATION
  3. METHYLPHENIDATE [Concomitant]
  4. MODAFINIL [Concomitant]

REACTIONS (1)
  - MANIA [None]
